FAERS Safety Report 16018239 (Version 1)
Quarter: 2019Q1

REPORT INFORMATION
  Report Type: Spontaneous
  Country: ES (occurrence: ES)
  Receive Date: 20190228
  Receipt Date: 20190228
  Transmission Date: 20190418
  Serious: Yes (Hospitalization, Congenital Anomaly, Other)
  Sender: FDA-Public Use
  Company Number: ES-JNJFOC-20190236350

PATIENT
  Sex: Male
  Weight: 1.44 kg

DRUGS (5)
  1. TRASTUZUMAB. [Suspect]
     Active Substance: TRASTUZUMAB
     Indication: BREAST NEOPLASM
     Route: 064
     Dates: start: 201702, end: 201704
  2. CYCLOPHOSPHAMIDE. [Suspect]
     Active Substance: CYCLOPHOSPHAMIDE
     Indication: BREAST NEOPLASM
     Route: 064
     Dates: start: 20161123, end: 20170125
  3. DOXORUBICIN HYDROCHLORIDE. [Suspect]
     Active Substance: DOXORUBICIN HYDROCHLORIDE
     Indication: BREAST NEOPLASM
     Route: 064
     Dates: start: 20161123, end: 20170125
  4. PERJETA [Suspect]
     Active Substance: PERTUZUMAB
     Indication: BREAST NEOPLASM
     Route: 064
     Dates: start: 201702, end: 201704
  5. PACLITAXEL. [Suspect]
     Active Substance: PACLITAXEL
     Indication: BREAST NEOPLASM
     Route: 064
     Dates: start: 20170125, end: 201703

REACTIONS (7)
  - Pulmonary hypoplasia [Recovering/Resolving]
  - Foetal exposure during pregnancy [Recovered/Resolved]
  - Premature baby [Unknown]
  - Heart disease congenital [Unknown]
  - Right ventricular hypertrophy [Recovered/Resolved]
  - Acute kidney injury [Recovering/Resolving]
  - Tidal volume decreased [Recovered/Resolved]

NARRATIVE: CASE EVENT DATE: 2017
